FAERS Safety Report 4893488-3 (Version None)
Quarter: 2006Q1

REPORT INFORMATION
  Report Type: 
  Country: None (occurrence: None)
  Receive Date: 20060127
  Receipt Date: 20050815
  Transmission Date: 20060701
  Serious: No
  Sender: FDA-Public Use
  Company Number: US-BRISTOL-MYERS SQUIBB COMPANY-13078456

PATIENT
  Age: 44 Year
  Sex: Female
  Weight: 91 kg

DRUGS (3)
  1. KENALOG [Suspect]
     Indication: LUMBAR RADICULOPATHY
     Dates: start: 20050725, end: 20050725
  2. LOTREL [Concomitant]
  3. IBUPROFEN [Concomitant]

REACTIONS (1)
  - MENORRHAGIA [None]
